FAERS Safety Report 9804061 (Version 2)
Quarter: 2014Q1

REPORT INFORMATION
  Report Type: Spontaneous
  Country: US (occurrence: None)
  Receive Date: 20140103
  Receipt Date: 20140204
  Transmission Date: 20141002
  Serious: Yes (Other)
  Sender: FDA-Public Use
  Company Number: 2013-US-004871

PATIENT
  Age: 62 Year
  Sex: Female

DRUGS (1)
  1. XYREM (SODIUM OXYBATE) ORAL SOLUTION, 500 MG/ML [Suspect]
     Indication: NARCOLEPSY
     Route: 048
     Dates: start: 200608, end: 2006

REACTIONS (2)
  - Surgery [None]
  - Gingival operation [None]
